FAERS Safety Report 14527707 (Version 1)
Quarter: 2018Q1

REPORT INFORMATION
  Report Type: Spontaneous
  Country: US (occurrence: US)
  Receive Date: 20180213
  Receipt Date: 20180213
  Transmission Date: 20180509
  Serious: No
  Sender: FDA-Public Use
  Company Number: US-BIOGEN-2018BI00518049

PATIENT
  Sex: Female

DRUGS (1)
  1. TYSABRI [Suspect]
     Active Substance: NATALIZUMAB
     Indication: MULTIPLE SCLEROSIS
     Route: 042
     Dates: start: 20120119, end: 20130426

REACTIONS (5)
  - Middle insomnia [Unknown]
  - Heart rate increased [Unknown]
  - Hypoaesthesia [Unknown]
  - Anxiety [Unknown]
  - Dyspnoea [Unknown]
